FAERS Safety Report 5678013-1 (Version None)
Quarter: 2008Q1

REPORT INFORMATION
  Report Type: 
  Country: None (occurrence: None)
  Receive Date: 20080319
  Receipt Date: 20080303
  Transmission Date: 20080703
  Serious: Yes (Death, Hospitalization)
  Sender: FDA-Public Use
  Company Number: 2007US002437

PATIENT
  Age: 57 Year
  Sex: Female
  Weight: 65.8 kg

DRUGS (1)
  1. AMEVIVE [Suspect]
     Indication: PSORIASIS
     Dosage: 15 MG, WEEKLY, INTRAMUSCULAR
     Route: 030
     Dates: start: 20051024

REACTIONS (15)
  - ABDOMINAL MASS [None]
  - ATELECTASIS [None]
  - BACTERAEMIA [None]
  - BLADDER DISORDER [None]
  - GASTROINTESTINAL DISORDER [None]
  - LIPOSARCOMA [None]
  - MALIGNANT ASCITES [None]
  - MULTI-ORGAN DISORDER [None]
  - OVARIAN MASS [None]
  - PLEURAL EFFUSION [None]
  - POSTOPERATIVE ILEUS [None]
  - SARCOMA UTERUS [None]
  - TUMOUR INVASION [None]
  - TUMOUR NECROSIS [None]
  - URINARY TRACT INFECTION ENTEROCOCCAL [None]
